FAERS Safety Report 9187199 (Version 1)
Quarter: 2013Q1

REPORT INFORMATION
  Report Type: Report from Study
  Country: CA (occurrence: CA)
  Receive Date: 20130325
  Receipt Date: 20130325
  Transmission Date: 20140127
  Serious: Yes (Other)
  Sender: FDA-Public Use
  Company Number: CA-JNJFOC-20130309157

PATIENT
  Sex: Male

DRUGS (14)
  1. REMICADE [Suspect]
     Indication: CROHN^S DISEASE
     Route: 042
     Dates: start: 20120430
  2. PANTOLOC [Concomitant]
     Route: 065
  3. CODEINE [Concomitant]
     Route: 065
  4. RELPAX [Concomitant]
     Route: 065
  5. ATENOLOL [Concomitant]
     Route: 065
  6. CHLORTHALIDONE [Concomitant]
     Route: 065
  7. AMLODIPINE [Concomitant]
     Route: 065
  8. PRAMIPEXOLE [Concomitant]
     Route: 065
  9. CIPROFLOXACINE [Concomitant]
     Route: 065
  10. FLAGYL [Concomitant]
     Route: 065
  11. VITAMINE E [Concomitant]
     Route: 065
  12. VITAMINE B12 [Concomitant]
     Route: 065
  13. CALCIUM [Concomitant]
     Route: 065
  14. IRON [Concomitant]
     Route: 065

REACTIONS (1)
  - Abdominal hernia [Unknown]
